FAERS Safety Report 25974915 (Version 2)
Quarter: 2025Q4

REPORT INFORMATION
  Report Type: Spontaneous
  Country: US (occurrence: US)
  Receive Date: 20251029
  Receipt Date: 20251110
  Transmission Date: 20260117
  Serious: Yes (Other)
  Sender: PFIZER
  Company Number: US-PFIZER INC-PV202500126877

PATIENT
  Age: 39 Year
  Sex: Male

DRUGS (1)
  1. PROPOFOL [Suspect]
     Active Substance: PROPOFOL
     Indication: Sedation
     Dosage: 40 UG/KG/MIN (HIGH DOSES) FOR 24 H

REACTIONS (1)
  - Priapism [Recovered/Resolved]
